FAERS Safety Report 11778207 (Version 1)
Quarter: 2015Q4

REPORT INFORMATION
  Report Type: Report from Study
  Country: AR (occurrence: AR)
  Receive Date: 20151125
  Receipt Date: 20151125
  Transmission Date: 20160304
  Serious: Yes (Other)
  Sender: FDA-Public Use
  Company Number: AR-ABBVIE-15P-007-1503796-00

PATIENT
  Age: 66 Year
  Sex: Male

DRUGS (1)
  1. ZEMPLAR [Suspect]
     Active Substance: PARICALCITOL
     Indication: CHRONIC KIDNEY DISEASE
     Route: 048
     Dates: start: 20150401

REACTIONS (3)
  - Angiopathy [Not Recovered/Not Resolved]
  - Malnutrition [Recovered/Resolved]
  - Presenile dementia [Not Recovered/Not Resolved]

NARRATIVE: CASE EVENT DATE: 201509
